FAERS Safety Report 16251402 (Version 1)
Quarter: 2019Q2

REPORT INFORMATION
  Report Type: Spontaneous
  Country: FR (occurrence: FR)
  Receive Date: 20190429
  Receipt Date: 20190429
  Transmission Date: 20190711
  Serious: Yes (Other)
  Sender: FDA-Public Use
  Company Number: FR-SA-2019SA114923

PATIENT
  Age: 77 Year
  Sex: Male

DRUGS (11)
  1. INSULIN [Concomitant]
     Active Substance: INSULIN NOS
  2. OXALIPLATIN. [Suspect]
     Active Substance: OXALIPLATIN
     Indication: ADENOCARCINOMA OF COLON
     Route: 041
     Dates: start: 20190306, end: 20190306
  3. KARDEGIC [Concomitant]
     Active Substance: ASPIRIN DL-LYSINE
     Dosage: UNK UNK, QD
  4. APREPITANT. [Suspect]
     Active Substance: APREPITANT
     Indication: PROPHYLAXIS OF NAUSEA AND VOMITING
     Dosage: 125MG ? J1 PUIS 80MG ? J2 ET J3
     Route: 048
     Dates: start: 20190306, end: 20190306
  5. SOLU-MEDROL [Suspect]
     Active Substance: METHYLPREDNISOLONE SODIUM SUCCINATE
     Indication: ALLERGY PROPHYLAXIS
     Route: 041
     Dates: start: 20190306, end: 20190306
  6. SERESTA [Concomitant]
     Active Substance: OXAZEPAM
     Dosage: UNK UNK, QD
  7. ONDANSETRON [Suspect]
     Active Substance: ONDANSETRON
     Dates: start: 20190306, end: 20190306
  8. BEVACIZUMAB. [Suspect]
     Active Substance: BEVACIZUMAB
     Indication: ADENOCARCINOMA OF COLON
     Route: 041
     Dates: start: 20190306, end: 20190306
  9. SIMVASTATIN. [Concomitant]
     Active Substance: SIMVASTATIN
     Dosage: UNK UNK, QD
  10. STAGID [Concomitant]
     Active Substance: METFORMIN PAMOATE
     Dosage: 2 DF, QD
  11. ESOMEPRAZOLE. [Concomitant]
     Active Substance: ESOMEPRAZOLE MAGNESIUM
     Dosage: UNK UNK, QD

REACTIONS (5)
  - Malaise [Recovered/Resolved]
  - Erythema [Recovered/Resolved]
  - Hypersensitivity [Recovered/Resolved]
  - Cough [Recovered/Resolved]
  - Hypotension [Recovered/Resolved]

NARRATIVE: CASE EVENT DATE: 20190306
